FAERS Safety Report 23255735 (Version 1)
Quarter: 2023Q4

REPORT INFORMATION
  Report Type: Spontaneous
  Country: US (occurrence: US)
  Receive Date: 20231204
  Receipt Date: 20231204
  Transmission Date: 20240109
  Serious: No
  Sender: FDA-Public Use
  Company Number: US-TOLMAR, INC.-23US044396

PATIENT
  Age: 54 Year
  Sex: Female

DRUGS (2)
  1. ELIGARD [Suspect]
     Active Substance: LEUPROLIDE ACETATE
     Indication: Ovarian cancer
     Dosage: 7.5 MILLIGRAM
     Dates: start: 20231028
  2. ELIGARD [Suspect]
     Active Substance: LEUPROLIDE ACETATE
     Indication: Ovarian cancer
     Dosage: UNK

REACTIONS (5)
  - Product administration error [Unknown]
  - Syringe issue [Unknown]
  - Device leakage [Unknown]
  - Incorrect dose administered [Unknown]
  - Off label use [Unknown]

NARRATIVE: CASE EVENT DATE: 20231028
